FAERS Safety Report 11100432 (Version 5)
Quarter: 2016Q2

REPORT INFORMATION
  Report Type: Report from Study
  Country: US (occurrence: US)
  Receive Date: 20150508
  Receipt Date: 20160620
  Transmission Date: 20160815
  Serious: Yes (Hospitalization, Other)
  Sender: FDA-Public Use
  Company Number: US-AMGEN-USASL2015043901

PATIENT
  Age: 29 Year
  Sex: Female
  Weight: 39.2 kg

DRUGS (5)
  1. HYDROCODONE [Concomitant]
     Active Substance: HYDROCODONE
     Dosage: 325 MG, UNK
  2. ENBREL [Suspect]
     Active Substance: ETANERCEPT
     Indication: ANKYLOSING SPONDYLITIS
  3. ENBREL [Suspect]
     Active Substance: ETANERCEPT
     Indication: PSORIASIS
  4. ENBREL [Suspect]
     Active Substance: ETANERCEPT
     Indication: RHEUMATOID ARTHRITIS
     Dosage: 50 MG, QWK
     Route: 065
     Dates: start: 20150502
  5. CLINDAMYCIN [Concomitant]
     Active Substance: CLINDAMYCIN\CLINDAMYCIN PHOSPHATE
     Dosage: 300 MG, UNK

REACTIONS (12)
  - Psoriasis [Not Recovered/Not Resolved]
  - Arthralgia [Unknown]
  - Nail bed disorder [Not Recovered/Not Resolved]
  - Mumps [Unknown]
  - Gait disturbance [Not Recovered/Not Resolved]
  - Incorrect product storage [Unknown]
  - Swelling face [Unknown]
  - Rheumatoid arthritis [Unknown]
  - Malaise [Unknown]
  - Ankylosing spondylitis [Unknown]
  - Weight increased [Unknown]
  - Hospitalisation [Unknown]

NARRATIVE: CASE EVENT DATE: 20150502
